FAERS Safety Report 5810576-5 (Version None)
Quarter: 2008Q3

REPORT INFORMATION
  Report Type: 
  Country: None (occurrence: None)
  Receive Date: 20080715
  Receipt Date: 20080703
  Transmission Date: 20090109
  Serious: Yes (Other)
  Sender: FDA-Public Use
  Company Number: JP-PFIZER INC-2008056702

PATIENT
  Age: 2 Year

DRUGS (1)
  1. HALCION [Suspect]
     Dosage: TEXT:2 TABS
     Route: 048

REACTIONS (4)
  - ACCIDENTAL EXPOSURE [None]
  - DIARRHOEA [None]
  - PYREXIA [None]
  - SOMNOLENCE [None]
